FAERS Safety Report 10343610 (Version 1)
Quarter: 2014Q3

REPORT INFORMATION
  Report Type: Spontaneous
  Country: GB (occurrence: GB)
  Receive Date: 20140725
  Receipt Date: 20140725
  Transmission Date: 20150326
  Serious: Yes (Other)
  Sender: FDA-Public Use
  Company Number: GB-GLAXOSMITHKLINE-B1008995A

PATIENT
  Age: 26 Year
  Sex: Female

DRUGS (3)
  1. INFLIXIMAB [Concomitant]
     Active Substance: INFLIXIMAB
  2. AZATHIOPRINE. [Concomitant]
     Active Substance: AZATHIOPRINE
  3. DUAC GEL [Suspect]
     Active Substance: BENZOYL PEROXIDE\CLINDAMYCIN PHOSPHATE
     Indication: ACNE
     Dosage: 1IUAX PER DAY
     Route: 061
     Dates: start: 20131112, end: 20131128

REACTIONS (4)
  - Swelling face [Unknown]
  - Erythema [Unknown]
  - Reaction to drug excipients [Recovered/Resolved]
  - Dermatitis contact [Recovered/Resolved]

NARRATIVE: CASE EVENT DATE: 20131125
